FAERS Safety Report 14141869 (Version 1)
Quarter: 2017Q4

REPORT INFORMATION
  Report Type: Spontaneous
  Country: US (occurrence: US)
  Receive Date: 20171030
  Receipt Date: 20171030
  Transmission Date: 20180321
  Serious: No
  Sender: FDA-Public Use
  Company Number: US-GLAXOSMITHKLINE-US2017164542

PATIENT
  Sex: Female

DRUGS (1)
  1. FLONASE [Suspect]
     Active Substance: FLUTICASONE PROPIONATE
     Indication: HYPERSENSITIVITY
     Dosage: UNK
     Dates: start: 20171011, end: 20171025

REACTIONS (4)
  - Gingival bleeding [Unknown]
  - Swollen tongue [Unknown]
  - Insomnia [Unknown]
  - Back pain [Unknown]

NARRATIVE: CASE EVENT DATE: 20171011
